FAERS Safety Report 22260152 (Version 6)
Quarter: 2025Q1

REPORT INFORMATION
  Report Type: Spontaneous
  Country: GB (occurrence: GB)
  Receive Date: 20230427
  Receipt Date: 20250304
  Transmission Date: 20250408
  Serious: Yes (Other)
  Sender: DAIICHI
  Company Number: GB-MYLANLABS-2023M1032684

PATIENT
  Age: 46 Year
  Sex: Male
  Weight: 92 kg

DRUGS (27)
  1. EDOXABAN [Suspect]
     Active Substance: EDOXABAN
     Indication: Prophylaxis
     Dosage: 60 MG, QD
     Route: 065
  2. CLOZARIL [Suspect]
     Active Substance: CLOZAPINE
     Indication: Schizophrenia
     Route: 048
     Dates: start: 20010701
  3. DOCUSATE [Suspect]
     Active Substance: DOCUSATE
     Indication: Constipation
     Dosage: 200 MG, QD (100 MILLIGRAM, BID (12 HOURS))
     Route: 048
  4. DOCUSATE [Suspect]
     Active Substance: DOCUSATE
     Dosage: 400 MG, QD (200 MILLIGRAMS, BID)
     Route: 048
  5. DOCUSATE [Suspect]
     Active Substance: DOCUSATE
     Dosage: 100 MILLIGRAM, BID (12 HOURS)
     Route: 048
  6. DOCUSATE [Suspect]
     Active Substance: DOCUSATE
     Dosage: 200 MILLIGRAM, BID
     Route: 048
  7. LANSOPRAZOLE [Suspect]
     Active Substance: LANSOPRAZOLE
     Indication: Gastrointestinal disorder
     Dosage: 15 MG, QD
     Route: 048
  8. LANSOPRAZOLE [Suspect]
     Active Substance: LANSOPRAZOLE
     Dosage: 15 MILLIGRAM, QD
     Route: 048
  9. PREGABALIN [Suspect]
     Active Substance: PREGABALIN
     Indication: Anxiety
     Dosage: 300 MG, QD (150 MILLIGRAMS, BID)
     Route: 048
  10. PREGABALIN [Suspect]
     Active Substance: PREGABALIN
     Dosage: 150 MILLIGRAM, BID
     Route: 048
  11. ZOPICLONE [Suspect]
     Active Substance: ZOPICLONE
     Indication: Insomnia
     Route: 048
  12. ZOPICLONE [Suspect]
     Active Substance: ZOPICLONE
     Route: 048
  13. ZOPICLONE [Suspect]
     Active Substance: ZOPICLONE
     Route: 048
  14. ZOPICLONE [Suspect]
     Active Substance: ZOPICLONE
     Route: 048
  15. CITALOPRAM [Concomitant]
     Active Substance: CITALOPRAM
     Indication: Anxiety
     Dosage: 40 MG, QD (MANY YEARS)
     Route: 048
  16. CITALOPRAM [Concomitant]
     Active Substance: CITALOPRAM
     Dosage: 40 MILLIGRAM, QD (MANY YEARS)
     Route: 048
  17. DIAZEPAM [Concomitant]
     Active Substance: DIAZEPAM
     Indication: Anxiety
     Route: 048
  18. DIAZEPAM [Concomitant]
     Active Substance: DIAZEPAM
     Route: 048
  19. DIAZEPAM [Concomitant]
     Active Substance: DIAZEPAM
     Route: 048
  20. DIAZEPAM [Concomitant]
     Active Substance: DIAZEPAM
     Route: 048
  21. POLYETHYLENE GLYCOL 3350\POTASSIUM CHLORIDE\SODIUM BICARBONATE\SODIUM [Concomitant]
     Active Substance: POLYETHYLENE GLYCOL 3350\POTASSIUM CHLORIDE\SODIUM BICARBONATE\SODIUM CHLORIDE
     Indication: Constipation
     Dosage: 1 DOSAGE FORM, QD ((1 SACHET DAILY, LONG TERM))
     Route: 048
  22. POLYETHYLENE GLYCOL 3350\POTASSIUM CHLORIDE\SODIUM BICARBONATE\SODIUM [Concomitant]
     Active Substance: POLYETHYLENE GLYCOL 3350\POTASSIUM CHLORIDE\SODIUM BICARBONATE\SODIUM CHLORIDE
     Route: 048
  23. PENICILLIN V [Concomitant]
     Active Substance: PENICILLIN V
     Indication: Prophylaxis
     Dosage: 250 MG (MORE THAN 20 YEARS BUT UNCERTAIN IN CONSISTENT USE)
     Route: 048
  24. PENICILLIN V [Concomitant]
     Active Substance: PENICILLIN V
     Dosage: 250 MILLIGRAM, QD (MORE THAN 20 YEARS BUT UNCERTAIN IN CONSISTENT USE)
     Route: 048
  25. INFLUENZA VIRUS VACCINE [Concomitant]
     Active Substance: INFLUENZA VIRUS VACCINE
     Indication: Product used for unknown indication
     Route: 065
  26. COVID-19 VACCINE [Concomitant]
     Indication: Product used for unknown indication
     Route: 065
  27. COVID-19 VACCINE [Concomitant]
     Indication: Immunisation

REACTIONS (5)
  - Neutropenia [Recovered/Resolved]
  - Blood test abnormal [Recovered/Resolved]
  - Eosinophil count decreased [Recovering/Resolving]
  - Hypovitaminosis [Recovered/Resolved]
  - Off label use [Unknown]

NARRATIVE: CASE EVENT DATE: 20200901
